FAERS Safety Report 7460732-8 (Version None)
Quarter: 2011Q2

REPORT INFORMATION
  Report Type: 
  Country: None (occurrence: None)
  Receive Date: 20110505
  Receipt Date: 20110422
  Transmission Date: 20111010
  Serious: Yes (Death, Hospitalization, Other)
  Sender: FDA-Public Use
  Company Number: HU-JNJFOC-20100401056

PATIENT
  Age: 47 Year
  Sex: Female
  Weight: 120 kg

DRUGS (4)
  1. REMICADE [Suspect]
     Route: 042
  2. REMICADE [Suspect]
     Route: 042
  3. FERROUS SULFATE-CYANOCOBALAMIN -FOLIC ACID [Concomitant]
  4. REMICADE [Suspect]
     Indication: PSORIASIS
     Route: 042

REACTIONS (4)
  - LEFT VENTRICULAR FAILURE [None]
  - MICROCYTIC ANAEMIA [None]
  - CARDIAC FAILURE [None]
  - PNEUMONIA [None]
